FAERS Safety Report 7261668-8 (Version None)
Quarter: 2011Q1

REPORT INFORMATION
  Report Type: 
  Country: None (occurrence: None)
  Receive Date: 20110124
  Receipt Date: 20110124
  Transmission Date: 20110831
  Serious: No
  Sender: FDA-Public Use
  Company Number: None

PATIENT
  Age: 57 Year
  Sex: Female
  Weight: 58.9676 kg

DRUGS (1)
  1. TRIAD ALCHOL PAD TRIAD GROUP [Suspect]
     Indication: THERAPEUTIC SKIN CARE TOPICAL
     Dates: start: 20110118, end: 20110121

REACTIONS (4)
  - MUSCLE SPASMS [None]
  - PRODUCT CONTAMINATION MICROBIAL [None]
  - DIARRHOEA [None]
  - POOR QUALITY DRUG ADMINISTERED [None]
